FAERS Safety Report 14690645 (Version 2)
Quarter: 2018Q2

REPORT INFORMATION
  Report Type: Not Available
  Country: US (occurrence: US)
  Receive Date: 20180328
  Receipt Date: 20180420
  Transmission Date: 20180711
  Serious: Yes (Hospitalization)
  Sender: FDA-Public Use
  Company Number: US-NEUROCRINE BIOSCIENCES INC.-2018NBI00830

PATIENT
  Sex: Female

DRUGS (6)
  1. ABILIFY [Concomitant]
     Active Substance: ARIPIPRAZOLE
  2. VALIUM [Concomitant]
     Active Substance: DIAZEPAM
  3. LAMICTAL [Concomitant]
     Active Substance: LAMOTRIGINE
     Indication: SCHIZOAFFECTIVE DISORDER
     Route: 048
  4. REXULTI [Concomitant]
     Active Substance: BREXPIPRAZOLE
     Indication: POST-TRAUMATIC STRESS DISORDER
     Route: 048
  5. INGREZZA [Suspect]
     Active Substance: VALBENAZINE
     Indication: TARDIVE DYSKINESIA
     Route: 048
     Dates: start: 20180308, end: 20180308
  6. TRINTELLIX [Concomitant]
     Active Substance: VORTIOXETINE HYDROBROMIDE
     Indication: POST-TRAUMATIC STRESS DISORDER
     Route: 048

REACTIONS (1)
  - Suicidal ideation [Unknown]

NARRATIVE: CASE EVENT DATE: 2018
